FAERS Safety Report 10866401 (Version 1)
Quarter: 2015Q1

REPORT INFORMATION
  Report Type: Spontaneous
  Country: US (occurrence: None)
  Receive Date: 20150219
  Receipt Date: 20150219
  Transmission Date: 20150721
  Serious: Yes (Other)
  Sender: FDA-Public Use
  Company Number: None

PATIENT
  Age: 8 Month
  Sex: Female
  Weight: 7.94 kg

DRUGS (3)
  1. TYLENOL [Suspect]
     Active Substance: ACETAMINOPHEN
  2. MOTRIN [Suspect]
     Active Substance: IBUPROFEN
  3. BABY TEETHING [Suspect]
     Active Substance: ARABICA COFFEE BEAN\ATROPA BELLADONNA\CALCIUM PHOSPHATE\CHAMOMILE
     Indication: TEETHING
     Dosage: UP TO 2 TABS EVERY HOUR X6D AS NEEDED DISSOLVED ON TONGUE

REACTIONS (6)
  - Abnormal behaviour [None]
  - Dyspnoea [None]
  - Flushing [None]
  - Mydriasis [None]
  - Irritability [None]
  - Fatigue [None]

NARRATIVE: CASE EVENT DATE: 20150218
